FAERS Safety Report 24713042 (Version 5)
Quarter: 2025Q1

REPORT INFORMATION
  Report Type: Spontaneous
  Country: JP (occurrence: JP)
  Receive Date: 20241209
  Receipt Date: 20250221
  Transmission Date: 20250408
  Serious: Yes (Death, Hospitalization, Other)
  Sender: ASTELLAS
  Company Number: JP-ASTELLAS-2024-AER-007755

PATIENT
  Age: 65 Year
  Sex: Male
  Weight: 58 kg

DRUGS (17)
  1. VYLOY [Suspect]
     Active Substance: ZOLBETUXIMAB-CLZB
     Indication: Gastric cancer
     Dosage: 1421MG, 500MG/7H
     Route: 042
     Dates: start: 20240724, end: 20240724
  2. VYLOY [Suspect]
     Active Substance: ZOLBETUXIMAB-CLZB
     Indication: Metastases to peritoneum
     Dosage: 500MG/2H
     Route: 042
     Dates: start: 20241003, end: 20241119
  3. VYLOY [Suspect]
     Active Substance: ZOLBETUXIMAB-CLZB
     Dosage: 500MG/5H
     Route: 042
     Dates: start: 20240815, end: 20240815
  4. CAPECITABINE [Suspect]
     Active Substance: CAPECITABINE
     Indication: Gastric cancer
     Dosage: ADMINISTERED FOR 2 TIMES, INTERRUPTED IN TIME 3
     Route: 048
     Dates: start: 20240724, end: 20241203
  5. CAPECITABINE [Suspect]
     Active Substance: CAPECITABINE
     Indication: Metastases to peritoneum
  6. OXALIPLATIN [Suspect]
     Active Substance: OXALIPLATIN
     Indication: Gastric cancer
     Dosage: 250MG/2H
     Route: 042
     Dates: start: 20240724, end: 20240815
  7. OXALIPLATIN [Suspect]
     Active Substance: OXALIPLATIN
     Indication: Metastases to peritoneum
     Dosage: 250MG/2H
     Route: 042
     Dates: start: 20241003, end: 20241119
  8. SODIUM FERROUS CITRATE [Concomitant]
     Active Substance: SODIUM FERROUS CITRATE
     Indication: Iron deficiency anaemia
     Route: 048
     Dates: start: 20231205, end: 20241208
  9. FUROSEMIDE [Concomitant]
     Active Substance: FUROSEMIDE
     Indication: Oedema
     Route: 048
     Dates: start: 20240723, end: 20241207
  10. FOSNETUPITANT CHLORIDE HYDROCHLORIDE [Concomitant]
     Active Substance: FOSNETUPITANT CHLORIDE HYDROCHLORIDE
     Indication: Nausea
     Route: 042
     Dates: start: 20240724, end: 20241119
  11. PALONOSETRON [Concomitant]
     Active Substance: PALONOSETRON
     Indication: Nausea
     Route: 042
     Dates: start: 20240724, end: 20241119
  12. DEXAMETHASONE SODIUM PHOSPHATE [Concomitant]
     Active Substance: DEXAMETHASONE SODIUM PHOSPHATE
     Indication: Nausea
     Route: 042
     Dates: start: 20240724, end: 20241119
  13. POLARAMINE [Concomitant]
     Active Substance: DEXCHLORPHENIRAMINE MALEATE
     Indication: Nausea
     Route: 042
     Dates: start: 20240724, end: 20241119
  14. FAMOTIDINE [Concomitant]
     Active Substance: FAMOTIDINE
     Indication: Nausea
     Route: 042
     Dates: start: 20240724, end: 20241119
  15. OLANZAPINE [Concomitant]
     Active Substance: OLANZAPINE
     Indication: Nausea
     Route: 048
     Dates: start: 20240724, end: 20241121
  16. DECADRON [Concomitant]
     Active Substance: DEXAMETHASONE
     Indication: Nausea
     Route: 048
     Dates: start: 20240725, end: 20241121
  17. MYSER cream [Concomitant]
     Indication: Palmar-plantar erythrodysaesthesia syndrome
     Dosage: APPROPRIATE AMOUNT
     Route: 062
     Dates: start: 20241119, end: 20241208

REACTIONS (6)
  - Cardiac failure acute [Fatal]
  - Pneumothorax [Recovered/Resolved]
  - Oedema peripheral [Not Recovered/Not Resolved]
  - Diarrhoea [Not Recovered/Not Resolved]
  - Face oedema [Not Recovered/Not Resolved]
  - Product use issue [Unknown]

NARRATIVE: CASE EVENT DATE: 20240911
